FAERS Safety Report 21074644 (Version 1)
Quarter: 2022Q3

REPORT INFORMATION
  Report Type: Report from Study
  Country: CA (occurrence: CA)
  Receive Date: 20220713
  Receipt Date: 20220713
  Transmission Date: 20221027
  Serious: Yes (Other)
  Sender: FDA-Public Use
  Company Number: CA-NOVARTISPH-NVSC2022CA155918

PATIENT
  Sex: Female

DRUGS (1)
  1. KESIMPTA [Suspect]
     Active Substance: OFATUMUMAB
     Indication: Relapsing-remitting multiple sclerosis
     Dosage: UNK
     Route: 058
     Dates: start: 20220608

REACTIONS (15)
  - Hyperthyroidism [Unknown]
  - Hypothyroidism [Unknown]
  - Malaise [Unknown]
  - Back pain [Unknown]
  - Fatigue [Unknown]
  - Head titubation [Unknown]
  - Periorbital oedema [Unknown]
  - Hypoacusis [Unknown]
  - Ear discomfort [Unknown]
  - Dysarthria [Unknown]
  - Hypoaesthesia [Unknown]
  - Dysstasia [Unknown]
  - Dry mouth [Unknown]
  - Somnolence [Unknown]
  - Dysphemia [Unknown]
